FAERS Safety Report 5275635-7 (Version None)
Quarter: 2007Q1

REPORT INFORMATION
  Report Type: 
  Country: None (occurrence: None)
  Receive Date: 20070326
  Receipt Date: 20070312
  Transmission Date: 20070707
  Serious: Yes (Other)
  Sender: FDA-Public Use
  Company Number: US-SANOFI-SYNTHELABO-A03200702197

PATIENT
  Sex: Male

DRUGS (7)
  1. GEODON [Concomitant]
     Dosage: UNK
     Route: 048
  2. LAMICTAL [Concomitant]
     Dosage: UNK
     Route: 048
  3. WELLBUTRIN [Concomitant]
     Dosage: UNK
     Route: 048
  4. DEPAKOTE [Concomitant]
     Dosage: UNK
     Route: 048
  5. LITHIUM CARBONATE [Concomitant]
     Dosage: UNK
     Route: 048
  6. AMBIEN [Suspect]
     Indication: INSOMNIA
     Dosage: UNK
     Route: 048
  7. AMBIEN [Suspect]
     Indication: HYPOMANIA
     Dosage: UNK
     Route: 048

REACTIONS (6)
  - AMNESIA [None]
  - ILL-DEFINED DISORDER [None]
  - ROAD TRAFFIC ACCIDENT [None]
  - SKIN LACERATION [None]
  - SLEEP TALKING [None]
  - SLEEP WALKING [None]
